FAERS Safety Report 9117056 (Version 2)
Quarter: 2013Q2

REPORT INFORMATION
  Report Type: Spontaneous
  Country: US (occurrence: US)
  Receive Date: 20130225
  Receipt Date: 20130617
  Transmission Date: 20140414
  Serious: Yes (Hospitalization)
  Sender: FDA-Public Use
  Company Number: US-BAYER-2013-021737

PATIENT
  Age: 39 Year
  Sex: Female

DRUGS (17)
  1. YAZ [Suspect]
  2. YASMIN [Suspect]
  3. OCELLA [Suspect]
  4. ZARAH [Suspect]
     Dosage: UNK
     Dates: start: 20101209, end: 20110707
  5. ALBUTEROL [Concomitant]
     Indication: DYSPNOEA
  6. SINGULAIR [Concomitant]
     Dosage: 10 MG, DAILY
     Route: 048
  7. CLARITIN [Concomitant]
     Dosage: 10 MG, DAILY
     Route: 048
  8. XANAX [Concomitant]
     Indication: ANXIETY
     Dosage: AS NEEDED
  9. DOXORUBICIN [Concomitant]
  10. CYTOXAN [Concomitant]
  11. ACETAMINOPHEN W/CODEINE [Concomitant]
     Dosage: UNK
     Route: 048
     Dates: start: 20111220
  12. PREDNISONE [Concomitant]
     Dosage: 10 MG,
     Route: 048
     Dates: start: 20120215
  13. ACTH [Concomitant]
     Dosage: UNK
     Dates: start: 20120228
  14. LIDOCAINE/PRILOCAINE [LIDOCAINE,PRILOCAINE] [Concomitant]
     Dosage: UNK
     Route: 061
     Dates: start: 20120309
  15. PROCHLORPERAZINE [Concomitant]
     Dosage: 10 MG, UNK
     Route: 048
     Dates: start: 201203
  16. VICODIN [Concomitant]
     Dosage: 5/500 PRN
     Route: 048
     Dates: start: 20120329
  17. FLEXERIL [Concomitant]
     Dosage: EVERY HS  HOURS OF SLEEP
     Route: 048
     Dates: start: 20120329

REACTIONS (4)
  - Jugular vein thrombosis [Recovering/Resolving]
  - Subclavian vein thrombosis [Recovering/Resolving]
  - Axillary vein thrombosis [Recovering/Resolving]
  - Jugular vein thrombosis [None]
